FAERS Safety Report 9549406 (Version 3)
Quarter: 2013Q3

REPORT INFORMATION
  Report Type: Spontaneous
  Country: JP (occurrence: JP)
  Receive Date: 20130924
  Receipt Date: 20130925
  Transmission Date: 20140515
  Serious: Yes (Other)
  Sender: FDA-Public Use
  Company Number: JP-PFIZER INC-2013188996

PATIENT
  Age: 58 Year
  Sex: Male

DRUGS (14)
  1. LYRICA [Suspect]
     Indication: POST HERPETIC NEURALGIA
     Dosage: 100 MG/DAY
     Route: 048
     Dates: start: 20120910
  2. LYRICA [Suspect]
     Dosage: 150 MG/DAY
  3. LYRICA [Suspect]
     Dosage: 200 MG/DAY
  4. LYRICA [Suspect]
     Dosage: 250 MG/DAY
     Dates: end: 20130613
  5. TAKEPRON [Concomitant]
     Dosage: 15 MG, 1X/DAY
     Route: 048
     Dates: start: 20120910
  6. MECOBALAMIN [Concomitant]
     Dosage: 500 UG, 3X/DAY
     Dates: start: 20120910
  7. MUCOSTA [Concomitant]
     Dosage: 100 MG, 3X/DAY
     Dates: start: 20120918
  8. TRAMACET [Concomitant]
     Dosage: UNK
     Dates: start: 20120918
  9. NEUROTROPIN [Concomitant]
     Dosage: 8 IU, 2X/DAY
     Dates: start: 20120910
  10. TRYPTANOL [Concomitant]
     Dosage: 10 MG, 1X/DAY
     Dates: start: 20120910
  11. CERNILTON [Concomitant]
     Dosage: UNK
     Dates: start: 20120918
  12. EVIPROSTAT [Concomitant]
     Dosage: UNK
     Dates: start: 20120918
  13. MAOUBUSHISAISHINTOU [Concomitant]
     Dosage: 7.5 G, 3X/DAY
     Dates: start: 20121022
  14. LUNESTA [Concomitant]
     Dosage: 1 MG, 1X/DAY
     Dates: start: 20120918

REACTIONS (10)
  - Herpes zoster [Unknown]
  - Visual acuity reduced [Unknown]
  - Cataract [Unknown]
  - Colour blindness [Unknown]
  - Eyelid oedema [Recovering/Resolving]
  - Ocular hyperaemia [Unknown]
  - Visual impairment [Unknown]
  - Eyelid pain [Unknown]
  - Vision blurred [Unknown]
  - Eye contusion [Unknown]
